FAERS Safety Report 17411032 (Version 1)
Quarter: 2020Q1

REPORT INFORMATION
  Report Type: Spontaneous
  Country: US (occurrence: US)
  Receive Date: 20200212
  Receipt Date: 20200212
  Transmission Date: 20200409
  Serious: No
  Sender: FDA-Public Use
  Company Number: US-BIOMARINAP-US-2020-127895

PATIENT
  Age: 55 Year
  Sex: Male
  Weight: 58 kg

DRUGS (1)
  1. VIMIZIM [Suspect]
     Active Substance: ELOSULFASE ALFA
     Indication: MUCOPOLYSACCHARIDOSIS IV
     Dosage: 130 MILLIGRAM, QW
     Route: 042
     Dates: start: 201706

REACTIONS (4)
  - Dizziness [Recovering/Resolving]
  - Sinus disorder [Recovering/Resolving]
  - Muscle strain [Recovering/Resolving]
  - Musculoskeletal pain [Recovering/Resolving]
